FAERS Safety Report 8415517-2 (Version None)
Quarter: 2012Q2

REPORT INFORMATION
  Report Type: 
  Country: None (occurrence: None)
  Receive Date: 20120606
  Receipt Date: 20120530
  Transmission Date: 20120825
  Serious: Yes (Hospitalization)
  Sender: FDA-Public Use
  Company Number: US-BAYER-2011-072690

PATIENT
  Age: 31 Year
  Sex: Female
  Weight: 66 kg

DRUGS (4)
  1. ORAL CONTRACEPTIVE NOS [Concomitant]
  2. IBUPROFEN [Concomitant]
     Dosage: AS NEEDED
     Route: 048
     Dates: start: 20041103
  3. YASMIN [Suspect]
     Indication: CONTRACEPTION
     Dosage: UNK
     Dates: start: 20040401, end: 20041101
  4. LEVAQUIN [Concomitant]

REACTIONS (7)
  - BACK PAIN [None]
  - ANHEDONIA [None]
  - DYSPNOEA [None]
  - PULMONARY EMBOLISM [None]
  - INJURY [None]
  - PAIN [None]
  - ANXIETY [None]
